APPROVED DRUG PRODUCT: AMINOSYN II 3.5% M
Active Ingredient: AMINO ACIDS; MAGNESIUM CHLORIDE; POTASSIUM CHLORIDE; SODIUM CHLORIDE; SODIUM PHOSPHATE, DIBASIC, HEPTAHYDRATE
Strength: 3.5%;30MG/100ML;97MG/100ML;120MG/100ML;49MG/100ML
Dosage Form/Route: INJECTABLE;INJECTION
Application: N019437 | Product #007
Applicant: ICU MEDICAL INC
Approved: Apr 3, 1986 | RLD: No | RS: No | Type: DISCN